FAERS Safety Report 8956843 (Version 1)
Quarter: 2012Q4

REPORT INFORMATION
  Report Type: 
  Country: ES (occurrence: ES)
  Receive Date: 20121211
  Receipt Date: 20121211
  Transmission Date: 20130627
  Serious: Yes (Hospitalization)
  Sender: FDA-Public Use
  Company Number: PHHY2012ES112260

PATIENT
  Age: 50 Year
  Sex: Male

DRUGS (5)
  1. TRILEPTAL [Suspect]
     Indication: PAIN
     Dosage: 300 mg, daily
     Route: 048
     Dates: start: 2010, end: 20101001
  2. RAMIPRIL [Suspect]
     Indication: HYPERTENSION
     Dosage: UNK UKN, UNK
     Dates: start: 20100920, end: 20101007
  3. DOBUPAL [Suspect]
     Indication: DEPRESSION
     Dosage: 150 mg, UNK
     Route: 048
  4. LYRICA [Suspect]
     Indication: PAIN
     Route: 048
  5. OMEPRAZOLE [Concomitant]
     Dosage: 20 mg, daily
     Route: 048
     Dates: start: 200911

REACTIONS (1)
  - Inappropriate antidiuretic hormone secretion [Recovered/Resolved]
